FAERS Safety Report 23581710 (Version 3)
Quarter: 2024Q2

REPORT INFORMATION
  Report Type: Spontaneous
  Country: US (occurrence: US)
  Receive Date: 20240229
  Receipt Date: 20240619
  Transmission Date: 20240716
  Serious: Yes (Hospitalization)
  Sender: FDA-Public Use
  Company Number: US-BRISTOL-MYERS SQUIBB COMPANY-2024-031528

PATIENT
  Age: 74 Year
  Sex: Female

DRUGS (2)
  1. LENALIDOMIDE [Suspect]
     Active Substance: LENALIDOMIDE
     Indication: Plasma cell myeloma
     Dosage: FREQUENCY- TAKE 1 CAPSULE WHOLE BY MOUTH WITH WATER AT SAME TIME DAILY ON DAYS 1-14 OF EACH 21 DAY C
     Route: 048
  2. LENALIDOMIDE [Suspect]
     Active Substance: LENALIDOMIDE
     Dosage: TAKE 1 CAPSULE (15  MG) BY MOUTH DAILY
     Route: 048

REACTIONS (5)
  - Cardiac disorder [Recovering/Resolving]
  - Peripheral swelling [Recovering/Resolving]
  - Off label use [Unknown]
  - Muscle spasms [Unknown]
  - Laboratory test abnormal [Unknown]
